FAERS Safety Report 20632278 (Version 11)
Quarter: 2022Q2

REPORT INFORMATION
  Report Type: Report from Study
  Country: BR (occurrence: BR)
  Receive Date: 20220324
  Receipt Date: 20220622
  Transmission Date: 20220721
  Serious: Yes (Hospitalization, Other)
  Sender: FDA-Public Use
  Company Number: BR-JNJFOC-20220339745

PATIENT
  Age: 23 Year
  Sex: Male

DRUGS (15)
  1. SPRAVATO [Suspect]
     Active Substance: ESKETAMINE
     Indication: Major depression
     Dosage: 3 DEVICES?ALSO REPORTED AS 84 MG, 21-FEB-2022
     Dates: start: 20220211
  2. SPRAVATO [Suspect]
     Active Substance: ESKETAMINE
     Indication: Suicidal ideation
  3. SPRAVATO [Suspect]
     Active Substance: ESKETAMINE
     Dates: start: 20220425
  4. AMITRIPTYLINE HYDROCHLORIDE [Concomitant]
     Active Substance: AMITRIPTYLINE HYDROCHLORIDE
     Route: 065
  5. QUETIAPINE [Concomitant]
     Active Substance: QUETIAPINE
     Route: 065
  6. LYDIAN [Concomitant]
     Route: 065
  7. VENLAFAXINE [Concomitant]
     Active Substance: VENLAFAXINE HYDROCHLORIDE
  8. LORATADINE [Concomitant]
     Active Substance: LORATADINE
  9. LITHIUM [Concomitant]
     Active Substance: LITHIUM
  10. AMPLICTIL [CHLORPROMAZINE] [Concomitant]
  11. LOSARTAN [Concomitant]
     Active Substance: LOSARTAN
  12. AMLODIPINE [Concomitant]
     Active Substance: AMLODIPINE BESYLATE
  13. TRAZODONE HYDROCHLORIDE [Concomitant]
     Active Substance: TRAZODONE HYDROCHLORIDE
  14. HYDROCHLOROTHIAZIDE\VALSARTAN [Concomitant]
     Active Substance: HYDROCHLOROTHIAZIDE\VALSARTAN
  15. AMITRIPTYLINE [Concomitant]
     Active Substance: AMITRIPTYLINE

REACTIONS (4)
  - Depression [Not Recovered/Not Resolved]
  - Suicidal ideation [Recovering/Resolving]
  - Drug ineffective [Unknown]
  - Panic attack [Recovering/Resolving]

NARRATIVE: CASE EVENT DATE: 20220101
